FAERS Safety Report 7155293-7 (Version None)
Quarter: 2010Q4

REPORT INFORMATION
  Report Type: 
  Country: None (occurrence: None)
  Receive Date: 20101214
  Receipt Date: 20091120
  Transmission Date: 20110411
  Serious: No
  Sender: FDA-Public Use
  Company Number: US-AMGEN-KDL376010

PATIENT

DRUGS (15)
  1. ENBREL [Suspect]
     Indication: PRODUCT USED FOR UNKNOWN INDICATION
     Dosage: 50 MG, QWK
     Route: 058
  2. CYCLOBENZAPRINE HCL [Concomitant]
     Dosage: 10 MG, UNK
  3. NABUMETONE [Concomitant]
     Dosage: 500 MG, UNK
  4. CARISOPRODOL [Concomitant]
     Dosage: 350 MG, UNK
  5. PREDNISONE [Concomitant]
     Dosage: 10 MG, UNK
  6. METHADONE [Concomitant]
     Dosage: 5 MG, UNK
  7. METHADONE [Concomitant]
     Dosage: 10 MG, UNK
  8. LEFLUNOMIDE [Concomitant]
     Dosage: 20 MG, UNK
  9. LISINOPRIL [Concomitant]
     Dosage: 5 MG, UNK
  10. RANITIDINE [Concomitant]
     Dosage: 150 MG, UNK
  11. FOLIC ACID [Concomitant]
     Dosage: 1 MG, UNK
  12. MULTI-VITAMINS [Concomitant]
  13. OXYCODONE [Concomitant]
     Dosage: 10 MG, UNK
  14. VITAMIN B COMPLEX [Concomitant]
  15. CALCIUM WITH VITAMIN D [Concomitant]

REACTIONS (1)
  - INJECTION SITE HAEMATOMA [None]
